FAERS Safety Report 25196648 (Version 1)
Quarter: 2025Q2

REPORT INFORMATION
  Report Type: Spontaneous
  Country: PL (occurrence: PL)
  Receive Date: 20250415
  Receipt Date: 20250415
  Transmission Date: 20250716
  Serious: Yes (Life-Threatening)
  Sender: TEVA
  Company Number: None

PATIENT
  Age: 34 Year
  Sex: Female
  Weight: 59 kg

DRUGS (2)
  1. OLANZAPINE [Suspect]
     Active Substance: OLANZAPINE
     Indication: Product used for unknown indication
     Route: 048
     Dates: start: 20210630, end: 20210630
  2. HYDROXYZINE [Suspect]
     Active Substance: HYDROXYZINE HYDROCHLORIDE
     Indication: Product used for unknown indication
     Route: 048
     Dates: start: 20210630, end: 20210630

REACTIONS (5)
  - Somnolence [Not Recovered/Not Resolved]
  - Suicide attempt [Not Recovered/Not Resolved]
  - Tic [Not Recovered/Not Resolved]
  - Toxicity to various agents [Not Recovered/Not Resolved]
  - Toxicity to various agents [Not Recovered/Not Resolved]

NARRATIVE: CASE EVENT DATE: 20210630
